FAERS Safety Report 24118156 (Version 1)
Quarter: 2024Q3

REPORT INFORMATION
  Report Type: Report from Study
  Country: CA (occurrence: None)
  Receive Date: 20240722
  Receipt Date: 20240722
  Transmission Date: 20241017
  Serious: Yes (Other)
  Sender: ASTRAZENECA
  Company Number: 2023A082620

PATIENT
  Sex: Female

DRUGS (7)
  1. FASENRA [Suspect]
     Active Substance: BENRALIZUMAB
     Indication: Asthma
     Dosage: 30.0MG UNKNOWN
     Route: 058
     Dates: start: 20210923
  2. PREDNISONE [Concomitant]
     Active Substance: PREDNISONE
  3. ADVAIR HFA [Concomitant]
     Active Substance: FLUTICASONE PROPIONATE\SALMETEROL XINAFOATE
  4. SPIRIVA RESPIMAT [Concomitant]
     Active Substance: TIOTROPIUM BROMIDE
  5. ALBUTEROL [Concomitant]
     Active Substance: ALBUTEROL
  6. AZITHROMYCIN [Concomitant]
     Active Substance: AZITHROMYCIN
  7. RIFAMPIN [Concomitant]
     Active Substance: RIFAMPIN

REACTIONS (1)
  - Deep vein thrombosis [Recovering/Resolving]
